FAERS Safety Report 17799372 (Version 2)
Quarter: 2022Q1

REPORT INFORMATION
  Report Type: Report from Study
  Country: CA (occurrence: CA)
  Receive Date: 20200518
  Receipt Date: 20220316
  Transmission Date: 20220424
  Serious: Yes (Hospitalization, Other)
  Sender: FDA-Public Use
  Company Number: CA-PFIZER INC-2020193991

PATIENT
  Age: 47 Year
  Sex: Male

DRUGS (17)
  1. HYDROMORPHONE HYDROCHLORIDE [Suspect]
     Active Substance: HYDROMORPHONE HYDROCHLORIDE
     Dosage: UNK
  2. MORPHINE SULFATE [Suspect]
     Active Substance: MORPHINE SULFATE
     Dosage: UNK
     Route: 065
  3. SANDOSTATIN [Suspect]
     Active Substance: OCTREOTIDE ACETATE
     Indication: Metastatic carcinoid tumour
     Dosage: 100 UG, 3X/DAY 7 MONTHS
     Route: 058
  4. SANDOSTATIN [Suspect]
     Active Substance: OCTREOTIDE ACETATE
     Dosage: 30 MG, EVERY 3 WEEKS
     Route: 030
  5. SANDOSTATIN LAR DEPOT [Suspect]
     Active Substance: OCTREOTIDE ACETATE
     Indication: Metastatic carcinoid tumour
     Dosage: 30 MG, MONTHLY
     Route: 030
  6. SANDOSTATIN LAR DEPOT [Suspect]
     Active Substance: OCTREOTIDE ACETATE
     Dosage: 30 MG, EVERY 3 WEEKS
     Route: 030
  7. SANDOSTATIN LAR DEPOT [Suspect]
     Active Substance: OCTREOTIDE ACETATE
     Dosage: 20 MG, MONTHLY
     Route: 030
  8. PANCREATIN [Concomitant]
     Active Substance: PANCRELIPASE
     Dosage: UNK
  9. PANTOPRAZOLE [Concomitant]
     Active Substance: PANTOPRAZOLE
     Dosage: UNK
  10. VENLAFAXINE [Concomitant]
     Active Substance: VENLAFAXINE HYDROCHLORIDE
     Dosage: UNK
  11. WARFARIN [Concomitant]
     Active Substance: WARFARIN
     Dosage: UNK
  12. DICLOFENAC [Concomitant]
     Active Substance: DICLOFENAC
     Dosage: 1 DF, 1X/DAY
     Route: 048
  13. ESCITALOPRAM [Concomitant]
     Active Substance: ESCITALOPRAM OXALATE
     Dosage: UNK
     Route: 065
  14. FUSIDIC ACID [Concomitant]
     Active Substance: FUSIDIC ACID
     Dosage: 2 DF, 1X/DAY
     Route: 065
  15. FUSIDIC ACID/HYDROCORTISONE [Concomitant]
     Dosage: UNK
     Route: 061
  16. LAMISIL [Concomitant]
     Active Substance: TERBINAFINE HYDROCHLORIDE
     Dosage: UNK, 2X/DAY
     Route: 061
  17. TRAMADOL HYDROCHLORIDE [Concomitant]
     Active Substance: TRAMADOL HYDROCHLORIDE
     Dosage: 300 MG, 1X/DAY
     Route: 048

REACTIONS (23)
  - Inappropriate schedule of product administration [Recovered/Resolved]
  - Underdose [Recovered/Resolved]
  - Blood pressure increased [Recovered/Resolved]
  - Blood pressure systolic increased [Recovered/Resolved]
  - Body temperature decreased [Recovered/Resolved]
  - Diarrhoea [Recovered/Resolved]
  - Drug hypersensitivity [Recovered/Resolved]
  - Injection site pain [Recovered/Resolved]
  - Intestinal obstruction [Recovered/Resolved]
  - Ligament sprain [Recovered/Resolved]
  - Metastases to lung [Recovered/Resolved]
  - Metastases to lymph nodes [Recovered/Resolved]
  - Miliaria [Recovered/Resolved]
  - Musculoskeletal pain [Recovered/Resolved]
  - Needle issue [Recovered/Resolved]
  - Pain in extremity [Recovered/Resolved]
  - Pruritus [Recovered/Resolved]
  - Respiratory tract infection bacterial [Recovered/Resolved]
  - Urticaria [Recovered/Resolved]
  - Injection site haemorrhage [Recovered/Resolved]
  - Malignant neoplasm progression [Recovered/Resolved]
  - Metastatic carcinoid tumour [Recovered/Resolved]
  - Weight decreased [Recovered/Resolved]
